FAERS Safety Report 5298400-3 (Version None)
Quarter: 2007Q2

REPORT INFORMATION
  Report Type: 
  Country: None (occurrence: None)
  Receive Date: 20070409
  Receipt Date: 20070328
  Transmission Date: 20071010
  Serious: Yes (Life-Threatening, Disabling, Other)
  Sender: FDA-Public Use
  Company Number: 100#03#2007-00999

PATIENT
  Age: 89 Year
  Sex: Female

DRUGS (12)
  1. CITALOPRAM HYDROBROMIDE [Suspect]
     Indication: DRUG USE FOR UNKNOWN INDICATION
     Dosage: 20 MG ( 1/ 1 DAYS) ORAL
     Route: 048
     Dates: start: 20040913, end: 20070316
  2. BENDROFLUMETHIAZIDE (BENDROFLUMETHIAZIDE) (BENDROFLUMETHIAZIDE) [Suspect]
     Indication: DRUG USE FOR UNKNOWN INDICATION
     Dosage: 2.5 MG (1 1DAYS) ORAL
     Route: 048
     Dates: start: 20070129, end: 20070313
  3. CANDESARTAN CILEXETIL [Suspect]
     Indication: DRUG USE FOR UNKNOWN INDICATION
     Dosage: 16 MG 1/ 1 DAYS) ORAL
     Route: 048
     Dates: start: 20021129, end: 20070313
  4. ADCAL-D3 (LEKOVIT CA) (CALCIUM CARBONATE, COLECALCIFEROL) [Concomitant]
  5. ACETYLSALICYLIC ACID (ACETYLSALICYLIC ACID) (ACETYLSALICYLIC ACID) [Concomitant]
  6. DICLOFENAC (DICLOFENAC) (DICLOFENAC) [Concomitant]
  7. FUROSEMIDE (FUROSEMIDE) (FUROSEMIDE) [Concomitant]
  8. GLICLAZIDE (GLICLAZIDE) (GLICLAZIDE) [Concomitant]
  9. MEFTFORMIN (METFORMIN) (METFORMIN) [Concomitant]
  10. OMEPRAZOLE [Concomitant]
  11. TIMOLOL (TIMOLOL) (TIMOLOL) [Concomitant]
  12. TRAVATAN (TRAVOPROST) (TRAVORPROST) [Concomitant]

REACTIONS (2)
  - HYPONATRAEMIA [None]
  - MALAISE [None]
